FAERS Safety Report 4990263-6 (Version None)
Quarter: 2006Q2

REPORT INFORMATION
  Report Type: 
  Country: None (occurrence: None)
  Receive Date: 20060503
  Receipt Date: 20060502
  Transmission Date: 20061013
  Serious: Yes (Hospitalization)
  Sender: FDA-Public Use
  Company Number: 200612346EU

PATIENT
  Age: 63 Year
  Sex: Female

DRUGS (7)
  1. NICODERM [Suspect]
     Indication: SMOKING CESSATION THERAPY
     Route: 062
     Dates: start: 20050801
  2. NICORETTE [Suspect]
     Indication: SMOKING CESSATION THERAPY
     Dosage: 1Z PER DAY
     Route: 055
     Dates: start: 20050812
  3. RAMIPRIL [Concomitant]
     Dates: start: 20040101
  4. ATORVASTATIN CALCIUM [Concomitant]
     Dates: start: 20040101
  5. ACETYLSALICYLIC ACID SRT [Concomitant]
     Indication: ANTICOAGULANT THERAPY
     Dates: start: 19950101
  6. CLONAZEPAM [Concomitant]
     Dates: start: 20040101
  7. AMLODIPINE BESYLATE [Concomitant]

REACTIONS (6)
  - ARTERIAL OCCLUSIVE DISEASE [None]
  - BACK PAIN [None]
  - DEPENDENCE [None]
  - INCORRECT DRUG ADMINISTRATION DURATION [None]
  - INCORRECT ROUTE OF DRUG ADMINISTRATION [None]
  - OVERDOSE [None]
